FAERS Safety Report 7090127-0 (Version None)
Quarter: 2010Q4

REPORT INFORMATION
  Report Type: 
  Country: None (occurrence: None)
  Receive Date: 20101105
  Receipt Date: 20101105
  Transmission Date: 20110411
  Serious: Yes (Other)
  Sender: FDA-Public Use
  Company Number: None

PATIENT
  Sex: Male
  Weight: 52.6173 kg

DRUGS (1)
  1. VENTOLIN HFA [Suspect]
     Indication: BRONCHITIS
     Dosage: 2 PUFFS 5-10 MINS EVERY 6 HRS
     Dates: start: 20101012

REACTIONS (4)
  - CHEST PAIN [None]
  - DYSPNOEA [None]
  - HEADACHE [None]
  - TREMOR [None]
